FAERS Safety Report 25141119 (Version 1)
Quarter: 2025Q1

REPORT INFORMATION
  Report Type: Report from Study
  Country: PH (occurrence: PH)
  Receive Date: 20250331
  Receipt Date: 20250331
  Transmission Date: 20250409
  Serious: Yes (Hospitalization)
  Sender: OTSUKA
  Company Number: PH-MMM-Otsuka-T15EX0IC

PATIENT

DRUGS (1)
  1. TOLVAPTAN [Suspect]
     Active Substance: TOLVAPTAN
     Indication: Cardiomegaly
     Dosage: 0.5 DF, TIW (15 MG HALF TABLET EVERY MONDAY, WEDNESDAY AND FRIDAY)
     Route: 048
     Dates: start: 2024

REACTIONS (9)
  - Pulmonary congestion [Unknown]
  - Cardiac failure congestive [Unknown]
  - Pneumonia [Unknown]
  - Dialysis [Unknown]
  - Cough [Unknown]
  - Asthenia [Unknown]
  - Wrong technique in product usage process [Unknown]
  - Inappropriate schedule of product administration [Unknown]
  - Underdose [Unknown]

NARRATIVE: CASE EVENT DATE: 20240101
